FAERS Safety Report 6903901-5 (Version None)
Quarter: 2010Q3

REPORT INFORMATION
  Report Type: 
  Country: None (occurrence: None)
  Receive Date: 20100804
  Receipt Date: 20090128
  Transmission Date: 20110219
  Serious: No
  Sender: FDA-Public Use
  Company Number: US-PFIZER INC-2008154998

PATIENT
  Sex: Male
  Weight: 105 kg

DRUGS (12)
  1. LYRICA [Suspect]
     Indication: BACK PAIN
     Dosage: 75 MG, 2X/DAY
     Dates: start: 20080601
  2. ASACOL [Concomitant]
     Dosage: 400 MG, UNK
  3. CYMBALTA [Concomitant]
     Dosage: UNK
  4. CELEBREX [Concomitant]
     Dosage: 200 MG, UNK
  5. ALLEGRA [Concomitant]
     Dosage: 180 MG, UNK
  6. OXYCODONE [Concomitant]
     Dosage: 10 MG, UNK
  7. OXYCODONE [Concomitant]
     Dosage: 5 MG, UNK
  8. FLEXERIL [Concomitant]
     Dosage: 10 MG, UNK
  9. ELAVIL [Concomitant]
     Dosage: 50 MG, UNK
  10. ULTRAM ER [Concomitant]
     Dosage: 200 MG, UNK
  11. GLUCOSAMINE [Concomitant]
     Dosage: UNK
  12. MULTI-VITAMINS [Concomitant]
     Dosage: UNK

REACTIONS (1)
  - DRUG SCREEN FALSE POSITIVE [None]
